FAERS Safety Report 14921837 (Version 2)
Quarter: 2018Q4

REPORT INFORMATION
  Report Type: Spontaneous
  Country: FR (occurrence: FR)
  Receive Date: 20180522
  Receipt Date: 20181026
  Transmission Date: 20190204
  Serious: Yes (Other)
  Sender: FDA-Public Use
  Company Number: FR-MERCK KGAA-2048203

PATIENT
  Age: 58 Year
  Sex: Female

DRUGS (2)
  1. NOVOTHYROX [Suspect]
     Active Substance: LEVOTHYROXINE SODIUM
     Dates: start: 20170704, end: 201710
  2. EUTHYROX [Suspect]
     Active Substance: LEVOTHYROXINE SODIUM
     Indication: AUTOIMMUNE THYROIDITIS
     Dates: start: 201705

REACTIONS (33)
  - Photopsia [Recovering/Resolving]
  - Pain in extremity [Recovering/Resolving]
  - Salivary gland calculus [Recovering/Resolving]
  - Malaise [Recovering/Resolving]
  - Loss of personal independence in daily activities [Recovering/Resolving]
  - Balance disorder [Recovering/Resolving]
  - Abdominal distension [Recovering/Resolving]
  - Alopecia [Recovering/Resolving]
  - Nausea [Recovering/Resolving]
  - Anxiety [Recovering/Resolving]
  - Irritability [Recovering/Resolving]
  - Fall [None]
  - Neck pain [Recovering/Resolving]
  - Disturbance in attention [Recovering/Resolving]
  - Burning sensation [Recovering/Resolving]
  - Weight increased [Recovering/Resolving]
  - Hypertension [Recovering/Resolving]
  - Chest pain [Recovering/Resolving]
  - Dizziness [Recovering/Resolving]
  - Gait disturbance [Recovering/Resolving]
  - Abdominal pain [Recovering/Resolving]
  - Blood thyroid stimulating hormone increased [Recovered/Resolved]
  - Diarrhoea [Recovering/Resolving]
  - Dry mouth [Recovering/Resolving]
  - Abdominal pain upper [Recovering/Resolving]
  - Asthenia [Recovering/Resolving]
  - Submaxillary gland enlargement [Recovering/Resolving]
  - Self esteem decreased [Not Recovered/Not Resolved]
  - Vomiting [Recovering/Resolving]
  - Syncope [Recovering/Resolving]
  - Pallor [Recovering/Resolving]
  - Blood pressure fluctuation [Recovering/Resolving]
  - Memory impairment [Recovering/Resolving]

NARRATIVE: CASE EVENT DATE: 2017
